FAERS Safety Report 24140953 (Version 1)
Quarter: 2024Q3

REPORT INFORMATION
  Report Type: Spontaneous
  Country: US (occurrence: US)
  Receive Date: 20240726
  Receipt Date: 20240726
  Transmission Date: 20241017
  Serious: No
  Sender: BIOVITRUM
  Company Number: US-BIOVITRUM-2024-US-010146

PATIENT
  Age: 17 Year
  Sex: Female

DRUGS (2)
  1. EMAPALUMAB [Suspect]
     Active Substance: EMAPALUMAB
     Indication: Product used for unknown indication
  2. ANAKINRA [Suspect]
     Active Substance: ANAKINRA
     Indication: Product used for unknown indication

REACTIONS (2)
  - Condition aggravated [Unknown]
  - Treatment failure [Unknown]
